FAERS Safety Report 9022817 (Version 1)
Quarter: 2013Q1

REPORT INFORMATION
  Report Type: Spontaneous
  Country: US (occurrence: US)
  Receive Date: 20130120
  Receipt Date: 20130120
  Transmission Date: 20140127
  Serious: No
  Sender: FDA-Public Use
  Company Number: US-ALLERGAN-1217494US

PATIENT
  Sex: Female

DRUGS (1)
  1. BOTOX? [Suspect]
     Indication: HYPERHIDROSIS
     Dosage: UNK, SINGLE
     Route: 023
     Dates: start: 20121211, end: 20121211

REACTIONS (1)
  - Injection site pain [Unknown]
